FAERS Safety Report 19853511 (Version 2)
Quarter: 2021Q4

REPORT INFORMATION
  Report Type: Spontaneous
  Country: PL (occurrence: PL)
  Receive Date: 20210919
  Receipt Date: 20211005
  Transmission Date: 20220303
  Serious: Yes (Other)
  Sender: FDA-Public Use
  Company Number: NVSC2021PL206794

PATIENT
  Age: 45 Year
  Sex: Female
  Weight: 35 kg

DRUGS (7)
  1. PIQRAY [Suspect]
     Active Substance: ALPELISIB
     Indication: Gastrointestinal carcinoma
     Dosage: 300 MG
     Route: 048
     Dates: start: 20210812
  2. INSULIN NOS [Concomitant]
     Active Substance: INSULIN NOS
     Indication: Product used for unknown indication
     Dosage: UNK
     Route: 065
  3. BUPRENORPHINE [Concomitant]
     Active Substance: BUPRENORPHINE
     Indication: Pain
     Dosage: 35 UG
     Route: 062
     Dates: start: 20210820
  4. GENSULIN N [Concomitant]
     Indication: Diabetes mellitus
     Dosage: 12 IU
     Route: 058
     Dates: start: 20210820
  5. INSULIN HUMAN [Concomitant]
     Active Substance: INSULIN HUMAN
     Indication: Diabetes mellitus
     Dosage: 36 IU, QD
     Route: 058
     Dates: start: 20210820
  6. BISOPROLOL FUMARATE [Concomitant]
     Active Substance: BISOPROLOL FUMARATE
     Indication: Arrhythmia
     Dosage: 2.5 MG
     Route: 048
     Dates: start: 20210820
  7. LEVOTHYROXINE SODIUM [Concomitant]
     Active Substance: LEVOTHYROXINE SODIUM
     Indication: Hypothyroidism
     Dosage: 100 UG (STRENGTH: 100)
     Route: 048

REACTIONS (3)
  - Hyperglycaemia [Recovering/Resolving]
  - Fatigue [Unknown]
  - Product use in unapproved indication [Unknown]

NARRATIVE: CASE EVENT DATE: 20210812
